FAERS Safety Report 5234288-4 (Version None)
Quarter: 2007Q1

REPORT INFORMATION
  Report Type: 
  Country: None (occurrence: None)
  Receive Date: 20070209
  Receipt Date: 20070206
  Transmission Date: 20070707
  Serious: Yes (Death, Hospitalization)
  Sender: FDA-Public Use
  Company Number: ES-BAYER-200710805GDS

PATIENT
  Age: 88 Year
  Sex: Female
  Weight: 65 kg

DRUGS (13)
  1. ASPIRIN [Suspect]
     Indication: MYOCARDIAL ISCHAEMIA
     Dosage: UNIT DOSE: 100 MG
     Route: 048
     Dates: start: 20060701
  2. SEVREDOL [Suspect]
     Indication: BACK PAIN
     Route: 048
     Dates: start: 20061124, end: 20061125
  3. DURAGESIC-100 [Suspect]
     Indication: BACK PAIN
     Dosage: UNIT DOSE: 25 ?G
     Route: 065
     Dates: start: 20061122, end: 20061126
  4. NOLOTIL [Suspect]
     Indication: BACK PAIN
     Dosage: UNIT DOSE: 575 MG
     Route: 048
     Dates: start: 20061102, end: 20061122
  5. PARACETAMOL [Suspect]
     Indication: BACK PAIN
     Route: 048
     Dates: start: 20061102, end: 20061122
  6. NSAID'S [Suspect]
     Indication: BACK PAIN
     Route: 048
     Dates: start: 20061027, end: 20061102
  7. ADOLONTA [Suspect]
     Indication: BACK PAIN
     Dosage: UNIT DOSE: 50 MG
     Route: 048
     Dates: start: 20061027
  8. CO-RENITEC [Suspect]
     Indication: ESSENTIAL HYPERTENSION
     Route: 048
     Dates: start: 20060701
  9. CARDURAN NEO [Suspect]
     Indication: ESSENTIAL HYPERTENSION
     Route: 048
     Dates: start: 20060701
  10. CALCITONIN-SALMON [Concomitant]
     Indication: DRUG USE FOR UNKNOWN INDICATION
     Route: 065
  11. MASTICAL [Concomitant]
     Indication: DRUG USE FOR UNKNOWN INDICATION
     Route: 065
  12. FOSAMAX [Concomitant]
     Indication: DRUG USE FOR UNKNOWN INDICATION
  13. NALOXON [Concomitant]
     Indication: DRUG USE FOR UNKNOWN INDICATION

REACTIONS (3)
  - ACIDOSIS [None]
  - CONFUSIONAL STATE [None]
  - RENAL FAILURE ACUTE [None]
